FAERS Safety Report 9809304 (Version 1)
Quarter: 2014Q1

REPORT INFORMATION
  Report Type: Spontaneous
  Country: US (occurrence: US)
  Receive Date: 20140110
  Receipt Date: 20140110
  Transmission Date: 20141002
  Serious: Yes (Disabling)
  Sender: FDA-Public Use
  Company Number: US-ELI_LILLY_AND_COMPANY-US201401000255

PATIENT
  Sex: Male

DRUGS (5)
  1. HUMALOG LISPRO [Suspect]
     Indication: DIABETES MELLITUS
     Dosage: 6 U, OTHER
     Route: 065
  2. HUMALOG LISPRO [Suspect]
     Dosage: 6 U, OTHER
     Route: 065
  3. LANTUS [Concomitant]
  4. CYMBALTA [Concomitant]
  5. LISINOPRIL [Concomitant]

REACTIONS (6)
  - Ligament rupture [Unknown]
  - Neuropathy peripheral [Unknown]
  - Confusional state [Unknown]
  - Sleep disorder [Unknown]
  - Spinal column stenosis [Unknown]
  - Blood glucose decreased [Unknown]
